FAERS Safety Report 10164669 (Version 1)
Quarter: 2014Q2

REPORT INFORMATION
  Report Type: Spontaneous
  Country: US (occurrence: US)
  Receive Date: 20140510
  Receipt Date: 20140510
  Transmission Date: 20141212
  Serious: No
  Sender: FDA-Public Use
  Company Number: US-BRISTOL-MYERS SQUIBB COMPANY-20355947

PATIENT
  Age: 61 Year
  Sex: 0
  Weight: 132.42 kg

DRUGS (18)
  1. BYETTA [Suspect]
  2. ATARAX [Concomitant]
  3. MIRALAX [Concomitant]
  4. LIOTHYRONINE [Concomitant]
  5. LIPITOR [Concomitant]
  6. PRILOSEC [Concomitant]
  7. METFORMIN [Concomitant]
  8. HCTZ [Concomitant]
  9. LUVOX [Concomitant]
  10. LAMOTRIGINE [Concomitant]
  11. OXYBUTYNIN [Concomitant]
  12. BUSPAR [Concomitant]
  13. NEURONTIN [Concomitant]
  14. BABY ASPIRIN [Concomitant]
  15. DILTIAZEM HCL [Concomitant]
  16. COLACE [Concomitant]
  17. IRON [Concomitant]
  18. ABILIFY [Concomitant]

REACTIONS (1)
  - Decreased appetite [Unknown]
